APPROVED DRUG PRODUCT: POTASSIUM CHLORIDE
Active Ingredient: POTASSIUM CHLORIDE
Strength: 20MEQ
Dosage Form/Route: FOR SOLUTION;ORAL
Application: N208019 | Product #001 | TE Code: AA
Applicant: GENUS LIFESCIENCES INC
Approved: Aug 19, 2015 | RLD: Yes | RS: No | Type: RX